FAERS Safety Report 6840557-4 (Version None)
Quarter: 2010Q3

REPORT INFORMATION
  Report Type: 
  Country: None (occurrence: None)
  Receive Date: 20100714
  Receipt Date: 20100707
  Transmission Date: 20110219
  Serious: Yes (Hospitalization)
  Sender: FDA-Public Use
  Company Number: A0869867A

PATIENT
  Age: 57 Year
  Sex: Male

DRUGS (2)
  1. AVANDIA [Suspect]
     Dosage: 4MG PER DAY
     Route: 048
     Dates: start: 20060610, end: 20061115
  2. AVANDAMET [Suspect]
     Route: 048
     Dates: start: 20061115, end: 20070901

REACTIONS (2)
  - HEART RATE INCREASED [None]
  - MYOCARDIAL INFARCTION [None]
